FAERS Safety Report 5164258-6 (Version None)
Quarter: 2006Q4

REPORT INFORMATION
  Report Type: 
  Country: None (occurrence: None)
  Receive Date: 20060918
  Receipt Date: 20060208
  Transmission Date: 20070319
  Serious: Yes (Other)
  Sender: FDA-Public Use
  Company Number: US-JNJFOC-20051102056

PATIENT
  Age: 50 Year
  Sex: Female
  Weight: 75.7507 kg

DRUGS (7)
  1. TOPAMAX [Suspect]
     Indication: MIGRAINE PROPHYLAXIS
     Dosage: 50 MG, 2 IN 1 DAY, ORAL
     Route: 048
     Dates: start: 20050830, end: 20051031
  2. CELEXA [Concomitant]
  3. CYTOMEL (TABLETS) LIOTHYRONINE SODIUM [Concomitant]
  4. NEXIUM [Concomitant]
  5. IMITREX [Concomitant]
  6. PROVA (ALL OTHER THERAPEUTIC PRODUCTS) [Concomitant]
  7. DARVOCET-N 100 [Concomitant]

REACTIONS (9)
  - APHASIA [None]
  - COGNITIVE DISORDER [None]
  - DECREASED APPETITE [None]
  - FATIGUE [None]
  - FLUID RETENTION [None]
  - GAIT DISTURBANCE [None]
  - MOOD ALTERED [None]
  - PARAESTHESIA [None]
  - SUICIDAL IDEATION [None]
